FAERS Safety Report 25167222 (Version 1)
Quarter: 2025Q2

REPORT INFORMATION
  Report Type: Spontaneous
  Country: ES (occurrence: None)
  Receive Date: 20250404
  Receipt Date: 20250404
  Transmission Date: 20250717
  Serious: Yes (Disabling, Other)
  Sender: FDA-CTU
  Company Number: None

PATIENT
  Age: 35 Year
  Sex: Female
  Weight: 75 kg

DRUGS (13)
  1. TOPAMAX [Suspect]
     Active Substance: TOPIRAMATE
     Indication: Weight decreased
     Dosage: FREQUENCY : TWICE A DAY;?
     Route: 048
     Dates: start: 20250216, end: 20250313
  2. TOPAMAX [Suspect]
     Active Substance: TOPIRAMATE
     Indication: Affective disorder
  3. AUGMENTIN [Suspect]
     Active Substance: AMOXICILLIN\CLAVULANATE POTASSIUM
  4. CODEINE [Suspect]
     Active Substance: CODEINE
  5. LAMICTAL [Concomitant]
     Active Substance: LAMOTRIGINE
  6. LATUDA [Concomitant]
     Active Substance: LURASIDONE HYDROCHLORIDE
  7. BUPROPION HYDROCHLORIDE [Concomitant]
     Active Substance: BUPROPION HYDROCHLORIDE
  8. LORMETAZEPAM [Concomitant]
     Active Substance: LORMETAZEPAM
  9. BIOTIN [Concomitant]
     Active Substance: BIOTIN
  10. ZINC [Concomitant]
     Active Substance: ZINC
  11. HERBALS\TURMERIC [Concomitant]
     Active Substance: HERBALS\TURMERIC
  12. Ornivel [Concomitant]
  13. Retirides [Concomitant]

REACTIONS (7)
  - Paraesthesia [None]
  - Respiratory tract infection [None]
  - Dysgeusia [None]
  - Parosmia [None]
  - Anosmia [None]
  - Ageusia [None]
  - Irritability [None]

NARRATIVE: CASE EVENT DATE: 20250309
